FAERS Safety Report 9641266 (Version 1)
Quarter: 2013Q4

REPORT INFORMATION
  Report Type: Spontaneous
  Country: DE (occurrence: DE)
  Receive Date: 20131023
  Receipt Date: 20131023
  Transmission Date: 20140711
  Serious: Yes (Hospitalization)
  Sender: FDA-Public Use
  Company Number: DE-WATSON-2013-19107

PATIENT
  Age: 63 Year
  Sex: Female
  Weight: 86 kg

DRUGS (7)
  1. CARBOPLATIN [Suspect]
     Indication: OVARIAN CANCER
     Dosage: 600 MG, SINGLE
     Route: 042
     Dates: start: 20130910, end: 20130910
  2. CARBOPLATIN [Suspect]
     Dosage: UNK
     Route: 065
     Dates: start: 201005, end: 201010
  3. PACLITAXEL [Concomitant]
     Indication: OVARIAN CANCER
     Dosage: 300 MG, UNK
     Route: 042
  4. PACLITAXEL [Concomitant]
     Dosage: UNK
     Route: 065
     Dates: start: 201005, end: 201010
  5. DEXAMETHASON                       /00016001/ [Concomitant]
     Indication: PROPHYLAXIS
     Dosage: 20 MG, UNK
     Route: 042
  6. TAVEGIL                            /00137201/ [Concomitant]
     Indication: PROPHYLAXIS
     Dosage: 2 MG, UNK
     Route: 042
  7. RANITIDIN [Concomitant]
     Indication: PROPHYLAXIS
     Dosage: 50 MG, UNK
     Route: 042

REACTIONS (4)
  - Anxiety [Recovered/Resolved]
  - Erythema [Recovered/Resolved]
  - Feeling hot [Recovered/Resolved]
  - Petechiae [Recovered/Resolved]
